FAERS Safety Report 16861479 (Version 6)
Quarter: 2021Q3

REPORT INFORMATION
  Report Type: Spontaneous
  Country: CZ (occurrence: CZ)
  Receive Date: 20190927
  Receipt Date: 20210712
  Transmission Date: 20211014
  Serious: Yes (Hospitalization, Other)
  Sender: FDA-Public Use
  Company Number: CZ-MYLANLABS-2019M1089280

PATIENT
  Age: 66 Year
  Sex: Male
  Weight: 90 kg

DRUGS (10)
  1. DICLOFENAC                         /00372302/ [Suspect]
     Active Substance: DICLOFENAC
     Indication: MUSCULOSKELETAL PAIN
     Dosage: 2 DOSAGE FORM
  2. TRAMADOL. [Suspect]
     Active Substance: TRAMADOL
     Indication: PAIN
     Dosage: UNK
  3. DICLOFENAC                         /00372302/ [Suspect]
     Active Substance: DICLOFENAC
     Indication: ARTHRALGIA
  4. TRAMADOL. [Suspect]
     Active Substance: TRAMADOL
     Indication: MUSCULOSKELETAL PAIN
  5. DICLOFENAC                         /00372302/ [Suspect]
     Active Substance: DICLOFENAC
     Indication: SPINAL PAIN
  6. PARACETAMOL [Suspect]
     Active Substance: ACETAMINOPHEN
     Indication: ARTHRALGIA
     Dosage: 6 OR MORE TABLET AS A DAY
     Route: 048
  7. TRAMADOL. [Suspect]
     Active Substance: TRAMADOL
     Indication: ARTHRALGIA
  8. PARACETAMOL [Suspect]
     Active Substance: ACETAMINOPHEN
     Indication: PAIN
  9. PARACETAMOL [Suspect]
     Active Substance: ACETAMINOPHEN
     Indication: MUSCULOSKELETAL PAIN
  10. DICLOFENAC                         /00372302/ [Suspect]
     Active Substance: DICLOFENAC
     Indication: PAIN
     Dosage: 100 MILLIGRAM, QD (50 MG, BID)
     Route: 048

REACTIONS (15)
  - Gastrointestinal haemorrhage [Unknown]
  - Gastric mucosal lesion [Unknown]
  - Blood pressure increased [Unknown]
  - Gastrointestinal ulcer haemorrhage [Recovered/Resolved]
  - Haematemesis [Unknown]
  - Abdominal pain upper [Recovered/Resolved]
  - Abdominal pain upper [Unknown]
  - Gastric haemorrhage [Recovered/Resolved]
  - Drug ineffective [Unknown]
  - Abdominal discomfort [Recovered/Resolved]
  - Discoloured vomit [Recovered/Resolved]
  - Vomiting [Recovered/Resolved]
  - Therapeutic response decreased [Unknown]
  - Drug intolerance [Unknown]
  - Nausea [Recovered/Resolved]

NARRATIVE: CASE EVENT DATE: 2017
